FAERS Safety Report 8896479 (Version 1)
Quarter: 2012Q4

REPORT INFORMATION
  Report Type: Spontaneous
  Country: US (occurrence: None)
  Receive Date: 20121107
  Receipt Date: 20121107
  Transmission Date: 20130627
  Serious: Yes (Other)
  Sender: FDA-Public Use
  Company Number: None

PATIENT
  Age: 69 Year
  Sex: Female
  Weight: 88 kg

DRUGS (8)
  1. NEUPOGEN [Suspect]
     Dosage: 480 mcg once sq
     Route: 058
     Dates: start: 20121016, end: 20121016
  2. OXALIPLATIN [Concomitant]
  3. LEUCOVORIN [Concomitant]
  4. 5-FU [Concomitant]
  5. AVASTIN [Concomitant]
  6. DECADRON [Concomitant]
  7. PALONOSETRON [Concomitant]
  8. HYDROCHLOROTHIAZIDE [Concomitant]

REACTIONS (5)
  - Dyspnoea [None]
  - Visual impairment [None]
  - Nausea [None]
  - Vomiting [None]
  - Neuropathy peripheral [None]
